FAERS Safety Report 13470256 (Version 1)
Quarter: 2017Q2

REPORT INFORMATION
  Report Type: Spontaneous
  Country: US (occurrence: US)
  Receive Date: 20170421
  Receipt Date: 20170421
  Transmission Date: 20170830
  Serious: Yes (Other)
  Sender: FDA-Public Use
  Company Number: None

PATIENT
  Age: 62 Year
  Sex: Male

DRUGS (1)
  1. SUTENT [Suspect]
     Active Substance: SUNITINIB MALATE
     Indication: GASTROINTESTINAL CARCINOMA
     Route: 048
     Dates: start: 20170315

REACTIONS (8)
  - Pain [None]
  - Abdominal pain upper [None]
  - Headache [None]
  - Fatigue [None]
  - Fungal infection [None]
  - Diarrhoea [None]
  - White blood cell count decreased [None]
  - Blister infected [None]

NARRATIVE: CASE EVENT DATE: 20170315
